FAERS Safety Report 8503923-7 (Version None)
Quarter: 2012Q3

REPORT INFORMATION
  Report Type: 
  Country: None (occurrence: None)
  Receive Date: 20120702
  Receipt Date: 20120619
  Transmission Date: 20120928
  Serious: Yes (Other)
  Sender: FDA-Public Use
  Company Number: INT_00063_2012

PATIENT
  Age: 44 Year
  Sex: Male

DRUGS (10)
  1. MEROPENEM [Suspect]
     Indication: PNEUMONIA LEGIONELLA
     Dosage: (DF (FREQUENCY UNKNOWN))
  2. MEROPENEM [Suspect]
     Indication: SEPSIS
     Dosage: (DF (FREQUENCY UNKNOWN))
  3. MEROPENEM [Suspect]
     Indication: ENDOCARDITIS
     Dosage: (DF (FREQUENCY UNKNOWN))
  4. MOXIFLOXACIN HCL [Suspect]
     Indication: ENDOCARDITIS
     Dosage: (DF (FREQUENCY UNKNOWN))
  5. MOXIFLOXACIN HCL [Suspect]
     Indication: SEPSIS
     Dosage: (DF (FREQUENCY UNKNOWN))
  6. MOXIFLOXACIN HCL [Suspect]
     Indication: PNEUMONIA LEGIONELLA
     Dosage: (DF (FREQUENCY UNKNOWN))
  7. VANCOMYCIN [Suspect]
     Indication: SEPSIS
     Dosage: (DF (FREQUENCY UNKNOWN))
  8. VANCOMYCIN [Suspect]
     Indication: ENDOCARDITIS
     Dosage: (DF (FREQUENCY UNKNOWN))
  9. VANCOMYCIN [Suspect]
     Indication: PNEUMONIA LEGIONELLA
     Dosage: (DF (FREQUENCY UNKNOWN))
  10. GLUCORTICOIDS [Concomitant]

REACTIONS (13)
  - GENERAL PHYSICAL HEALTH DETERIORATION [None]
  - FATIGUE [None]
  - SEPSIS [None]
  - OEDEMA PERIPHERAL [None]
  - RENAL FAILURE ACUTE [None]
  - AORTIC VALVE DISEASE [None]
  - DRUG RASH WITH EOSINOPHILIA AND SYSTEMIC SYMPTOMS [None]
  - TUBULOINTERSTITIAL NEPHRITIS [None]
  - ARTHRALGIA [None]
  - ENDOCARDITIS [None]
  - FEELING HOT [None]
  - PRURITUS [None]
  - LEGIONELLA INFECTION [None]
